FAERS Safety Report 8556977-6 (Version None)
Quarter: 2012Q3

REPORT INFORMATION
  Report Type: 
  Country: None (occurrence: None)
  Receive Date: 20120801
  Receipt Date: 20120724
  Transmission Date: 20120928
  Serious: Yes (Other)
  Sender: FDA-Public Use
  Company Number: JP-VERTEX PHARMACEUTICALS INC.-AE-2012-008782

PATIENT
  Sex: Male

DRUGS (11)
  1. RIBAVIRIN [Concomitant]
     Route: 048
     Dates: start: 20120330, end: 20120405
  2. PEGINTERFERON ALFA-2B [Concomitant]
     Indication: HEPATITIS C
     Route: 058
     Dates: start: 20120302, end: 20120412
  3. RIBAVIRIN [Concomitant]
     Route: 048
     Dates: start: 20120406, end: 20120412
  4. ONEALFA [Concomitant]
     Route: 048
     Dates: start: 20120302
  5. PEGINTERFERON ALFA-2B [Concomitant]
     Route: 058
     Dates: start: 20120413
  6. RIBAVIRIN [Concomitant]
     Route: 048
     Dates: start: 20120413
  7. TELAVIC (TELAPREVIR) [Suspect]
     Indication: HEPATITIS C
     Route: 048
     Dates: start: 20120302
  8. RIBAVIRIN [Concomitant]
     Indication: HEPATITIS C
     Route: 048
     Dates: start: 20120302, end: 20120329
  9. ALLOPURINOL [Concomitant]
     Dates: start: 20120406
  10. PEGINTERFERON ALFA-2B [Concomitant]
     Route: 058
     Dates: start: 20120413
  11. LOCHOLEST [Concomitant]
     Route: 048
     Dates: start: 20120302

REACTIONS (1)
  - RETINAL HAEMORRHAGE [None]
